FAERS Safety Report 4353972-8 (Version None)
Quarter: 2004Q2

REPORT INFORMATION
  Report Type: 
  Country: None (occurrence: None)
  Receive Date: 20040506
  Receipt Date: 20040301
  Transmission Date: 20050107
  Serious: No
  Sender: FDA-Public Use
  Company Number: US-GLAXOSMITHKLINE-A0500672A

PATIENT
  Age: 44 Year
  Sex: Male

DRUGS (3)
  1. AVANDAMET [Suspect]
     Route: 048
  2. LIPITOR [Concomitant]
  3. PINDOLOL [Concomitant]

REACTIONS (3)
  - DRUG INEFFECTIVE [None]
  - HYPERGLYCAEMIA [None]
  - PYREXIA [None]
